FAERS Safety Report 15462206 (Version 1)
Quarter: 2018Q4

REPORT INFORMATION
  Report Type: Spontaneous
  Country: US (occurrence: US)
  Receive Date: 20181004
  Receipt Date: 20181004
  Transmission Date: 20190204
  Serious: Yes (Other)
  Sender: FDA-Public Use
  Company Number: PHEH2018US040590

PATIENT
  Sex: Male
  Weight: 123.3 kg

DRUGS (1)
  1. OXCARBAZEPINE. [Suspect]
     Active Substance: OXCARBAZEPINE
     Indication: DIABETIC NEUROPATHY
     Dosage: 100 MG, BID
     Route: 065

REACTIONS (3)
  - Hiccups [Unknown]
  - Therapeutic product ineffective for unapproved indication [Unknown]
  - Product use in unapproved indication [Unknown]
